FAERS Safety Report 7939613-9 (Version None)
Quarter: 2011Q4

REPORT INFORMATION
  Report Type: 
  Country: None (occurrence: None)
  Receive Date: 20111125
  Receipt Date: 20111116
  Transmission Date: 20120403
  Serious: Yes (Other)
  Sender: FDA-Public Use
  Company Number: ES-AMGEN-ESPSP2011060543

PATIENT
  Age: 82 Year
  Sex: Female

DRUGS (3)
  1. CINACALCET HYDROCHLORIDE [Suspect]
     Indication: HYPERPARATHYROIDISM SECONDARY
     Dosage: 60 MG, QD
     Dates: start: 20111001
  2. CINACALCET HYDROCHLORIDE [Suspect]
     Dosage: 30 MG, UNK
     Dates: start: 20080601, end: 20100901
  3. CINACALCET HYDROCHLORIDE [Suspect]
     Dosage: 30 MG, UNK
     Dates: start: 20110301, end: 20111001

REACTIONS (1)
  - HALLUCINATION, AUDITORY [None]
